FAERS Safety Report 20762869 (Version 4)
Quarter: 2022Q3

REPORT INFORMATION
  Report Type: Report from Study
  Country: US (occurrence: US)
  Receive Date: 20220428
  Receipt Date: 20220930
  Transmission Date: 20221027
  Serious: Yes (Hospitalization, Other)
  Sender: FDA-Public Use
  Company Number: US-INSMED, INC.-2021-10420-US

PATIENT
  Age: 66 Year
  Sex: Female
  Weight: 58 kg

DRUGS (4)
  1. ARIKAYCE [Suspect]
     Active Substance: AMIKACIN
     Indication: Mycobacterial infection
     Dosage: 590 MILLIGRAM, QD
     Route: 055
     Dates: start: 20211210, end: 2022
  2. ARIKAYCE [Suspect]
     Active Substance: AMIKACIN
     Dosage: 590 MILLIGRAM, QD
     Route: 055
     Dates: start: 2022, end: 20220902
  3. VENTOLIN [Concomitant]
     Active Substance: ALBUTEROL SULFATE
     Indication: Product used for unknown indication
     Route: 065
  4. AMIKACIN NCD [Concomitant]
     Indication: Mycobacterial infection
     Dosage: UNK UNK, TIW
     Route: 042
     Dates: start: 202205, end: 20220826

REACTIONS (11)
  - Hospitalisation [Unknown]
  - Hospitalisation [Unknown]
  - Deafness [Not Recovered/Not Resolved]
  - Ear discomfort [Not Recovered/Not Resolved]
  - Muscle spasms [Unknown]
  - Cough [Not Recovered/Not Resolved]
  - Dysphonia [Unknown]
  - Nausea [Unknown]
  - Dyspnoea [Unknown]
  - Hypersensitivity [Unknown]
  - Therapy interrupted [Unknown]

NARRATIVE: CASE EVENT DATE: 20211210
